FAERS Safety Report 8393745 (Version 10)
Quarter: 2015Q4

REPORT INFORMATION
  Report Type: Report from Study
  Country: CA (occurrence: CA)
  Receive Date: 20120207
  Receipt Date: 20151203
  Transmission Date: 20160305
  Serious: Yes (Hospitalization, Other)
  Sender: FDA-Public Use
  Company Number: CA-ROCHE-1033925

PATIENT
  Age: 64 Year
  Sex: Female
  Weight: 63.5 kg

DRUGS (46)
  1. ACIDOPHILUS [Concomitant]
     Active Substance: LACTOBACILLUS ACIDOPHILUS
  2. PREDNISONE. [Concomitant]
     Active Substance: PREDNISONE
     Indication: PREMEDICATION
     Route: 048
     Dates: start: 20111004, end: 20111004
  3. PREDNISONE. [Concomitant]
     Active Substance: PREDNISONE
     Route: 048
  4. MELATONIN [Concomitant]
     Active Substance: MELATONIN
  5. PREGABALIN. [Concomitant]
     Active Substance: PREGABALIN
     Indication: PAIN
     Route: 048
  6. FERROUS FUMARATE [Concomitant]
     Active Substance: FERROUS FUMARATE
     Route: 048
  7. SENNOSIDE [Concomitant]
     Active Substance: SENNOSIDES
  8. ACETAMINOFEN [Concomitant]
     Active Substance: ACETAMINOPHEN
     Dosage: ONCE
     Route: 065
     Dates: start: 20111004, end: 20111004
  9. ACETAMINOFEN [Concomitant]
     Active Substance: ACETAMINOPHEN
     Route: 048
     Dates: start: 20101020
  10. OMEGA 3 [Concomitant]
     Active Substance: OMEGA-3 FATTY ACIDS
  11. NEXIUM [Concomitant]
     Active Substance: ESOMEPRAZOLE MAGNESIUM
     Route: 048
  12. TYLENOL [Concomitant]
     Active Substance: ACETAMINOPHEN
     Indication: MYALGIA
  13. RITUXAN [Suspect]
     Active Substance: RITUXIMAB
     Indication: VASCULITIS
     Dosage: DAY 1 AND 15
     Route: 042
     Dates: start: 20110929
  14. DIPHENHYDRAMINE HCL [Concomitant]
     Active Substance: DIPHENHYDRAMINE HYDROCHLORIDE
     Dosage: ONCE
     Route: 048
     Dates: start: 20111004, end: 20111004
  15. CLONAZEPAM. [Concomitant]
     Active Substance: CLONAZEPAM
     Route: 048
  16. PREDNISONE. [Concomitant]
     Active Substance: PREDNISONE
     Indication: IMMUNOSUPPRESSION
     Route: 048
  17. NORTRIPTYLINE [Concomitant]
     Active Substance: NORTRIPTYLINE
     Indication: PAIN
     Route: 048
  18. LORAZEPAM. [Concomitant]
     Active Substance: LORAZEPAM
  19. RANITIDINE [Concomitant]
     Active Substance: RANITIDINE\RANITIDINE HYDROCHLORIDE
  20. FUROSEMIDE. [Concomitant]
     Active Substance: FUROSEMIDE
     Route: 048
  21. TYLENOL [Concomitant]
     Active Substance: ACETAMINOPHEN
     Indication: ARTHRITIS
  22. METHADONE [Concomitant]
     Active Substance: METHADONE HYDROCHLORIDE
     Indication: PAIN
     Route: 048
  23. RITUXAN [Suspect]
     Active Substance: RITUXIMAB
     Route: 065
     Dates: start: 20130729
  24. LASIX [Concomitant]
     Active Substance: FUROSEMIDE
  25. METHOTREXATE [Concomitant]
     Active Substance: METHOTREXATE
     Indication: IMMUNOSUPPRESSION
     Route: 030
  26. DESLORATADINE. [Concomitant]
     Active Substance: DESLORATADINE
  27. WARFARIN [Concomitant]
     Active Substance: WARFARIN
     Route: 048
  28. HYDROMORPH CONTIN [Concomitant]
     Active Substance: HYDROMORPHONE
     Indication: PAIN
     Dosage: 1-2 MG
     Route: 065
  29. POTASSIUM CHLORIDE. [Concomitant]
     Active Substance: POTASSIUM CHLORIDE
     Route: 048
  30. VITAMIN C [Concomitant]
     Active Substance: ASCORBIC ACID
  31. ALENDRONATE [Concomitant]
     Active Substance: ALENDRONATE SODIUM
     Route: 048
  32. RITUXAN [Suspect]
     Active Substance: RITUXIMAB
     Indication: SJOGREN^S SYNDROME
     Dosage: THE LAST DOSE OF RITUXAN WAS RECEIVED ON 13/AUG/2014.
     Route: 042
     Dates: start: 20100209
  33. RITUXAN [Suspect]
     Active Substance: RITUXIMAB
     Route: 065
     Dates: start: 20121220
  34. PREDNISONE. [Concomitant]
     Active Substance: PREDNISONE
     Route: 048
     Dates: start: 20100209
  35. PREDNISONE. [Concomitant]
     Active Substance: PREDNISONE
     Route: 065
  36. LYRICA [Concomitant]
     Active Substance: PREGABALIN
     Indication: PAIN
  37. BACLOFEN. [Concomitant]
     Active Substance: BACLOFEN
  38. DIPHENHYDRAMINE HCL [Concomitant]
     Active Substance: DIPHENHYDRAMINE HYDROCHLORIDE
     Indication: PREMEDICATION
     Route: 065
     Dates: start: 20100209
  39. AMLODIPIN [Concomitant]
     Active Substance: AMLODIPINE BESYLATE
     Route: 048
  40. TIZANIDINE. [Concomitant]
     Active Substance: TIZANIDINE
     Indication: HYPOTONIA
     Route: 048
  41. RITUXAN [Suspect]
     Active Substance: RITUXIMAB
     Route: 042
     Dates: start: 20120503
  42. ACETAMINOFEN [Concomitant]
     Active Substance: ACETAMINOPHEN
     Indication: PREMEDICATION
     Route: 048
     Dates: start: 20100209, end: 20100224
  43. FOLIC ACID. [Concomitant]
     Active Substance: FOLIC ACID
     Route: 048
  44. NASONEX [Concomitant]
     Active Substance: MOMETASONE FUROATE
  45. PREGABALIN. [Concomitant]
     Active Substance: PREGABALIN
     Route: 048
  46. DOCUSATE SODIUM. [Concomitant]
     Active Substance: DOCUSATE SODIUM

REACTIONS (15)
  - Urinary bladder haemorrhage [Recovered/Resolved]
  - Pruritus [Unknown]
  - Urinary tract infection [Unknown]
  - Breast cancer recurrent [Not Recovered/Not Resolved]
  - Hernia hiatus repair [Recovered/Resolved]
  - Depression [Unknown]
  - Bladder prolapse [Not Recovered/Not Resolved]
  - Sepsis [Unknown]
  - Pneumonia aspiration [Recovered/Resolved]
  - Intestinal prolapse [Unknown]
  - Pneumonia [Unknown]
  - Hip arthroplasty [Recovered/Resolved]
  - Bronchitis [Unknown]
  - Cystitis haemorrhagic [Recovered/Resolved]
  - Cystitis [Unknown]

NARRATIVE: CASE EVENT DATE: 201108
